FAERS Safety Report 14036760 (Version 1)
Quarter: 2017Q4

REPORT INFORMATION
  Report Type: Report from Study
  Country: None (occurrence: US)
  Receive Date: 20171003
  Receipt Date: 20171003
  Transmission Date: 20180321
  Serious: Yes (Hospitalization, Other)
  Sender: FDA-Public Use
  Company Number: US-ABBVIE-17K-163-2111060-00

PATIENT
  Age: 67 Year
  Sex: Male
  Weight: 92.16 kg

DRUGS (4)
  1. HUMIRA [Suspect]
     Active Substance: ADALIMUMAB
     Route: 058
     Dates: end: 201707
  2. METHOTREXATE. [Suspect]
     Active Substance: METHOTREXATE
     Indication: RHEUMATOID ARTHRITIS
     Route: 065
     Dates: start: 2014
  3. HUMIRA [Suspect]
     Active Substance: ADALIMUMAB
     Indication: RHEUMATOID ARTHRITIS
     Route: 058
  4. HUMIRA [Suspect]
     Active Substance: ADALIMUMAB
     Route: 058
     Dates: start: 201706, end: 201709

REACTIONS (19)
  - Arrhythmia [Recovered/Resolved]
  - Weight decreased [Recovered/Resolved]
  - Feeling abnormal [Recovered/Resolved]
  - Immunodeficiency [Not Recovered/Not Resolved]
  - Coronary artery occlusion [Recovered/Resolved]
  - Vascular stent thrombosis [Recovered/Resolved]
  - Pneumonia [Recovered/Resolved]
  - Overweight [Recovered/Resolved]
  - Body height decreased [Not Recovered/Not Resolved]
  - Type 2 diabetes mellitus [Recovered/Resolved]
  - Pyrexia [Recovered/Resolved]
  - Pneumonia [Recovering/Resolving]
  - Bone atrophy [Not Recovered/Not Resolved]
  - Cough [Unknown]
  - Productive cough [Not Recovered/Not Resolved]
  - Myocardial infarction [Recovered/Resolved]
  - Cough [Recovering/Resolving]
  - Knee operation [Recovered/Resolved]
  - Rheumatoid arthritis [Not Recovered/Not Resolved]

NARRATIVE: CASE EVENT DATE: 2005
